FAERS Safety Report 8951053 (Version 1)
Quarter: 2012Q4

REPORT INFORMATION
  Report Type: 
  Country: US (occurrence: US)
  Receive Date: 20121207
  Receipt Date: 20121207
  Transmission Date: 20130627
  Serious: Yes (Other)
  Sender: FDA-Public Use
  Company Number: US-COVIDIEN/TYCO HEALTHCARE/MALLINCKRODT-T201204245

PATIENT
  Age: 54 Year
  Sex: Male

DRUGS (3)
  1. EXALGO EXTENDED RELEASE [Suspect]
     Indication: PRODUCT USED FOR UNKNOWN INDICATION
     Dosage: One
  2. VICODIN [Suspect]
     Indication: PRODUCT USED FOR UNKNOWN INDICATION
     Dosage: Two 10 mg
  3. MUSCLE RELAXANTS (NOS) [Suspect]
     Indication: PRODUCT USED FOR UNKNOWN INDICATION
     Dosage: One

REACTIONS (2)
  - Drug diversion [Unknown]
  - Accidental exposure to product [Recovered/Resolved]
